FAERS Safety Report 6829692-4 (Version None)
Quarter: 2010Q3

REPORT INFORMATION
  Report Type: 
  Country: None (occurrence: None)
  Receive Date: 20100709
  Receipt Date: 20070514
  Transmission Date: 20110219
  Serious: Yes (Other)
  Sender: FDA-Public Use
  Company Number: US-PFIZER INC-2007009881

PATIENT
  Sex: Female

DRUGS (7)
  1. CHANTIX [Suspect]
     Dates: start: 20070101, end: 20070201
  2. SPIRIVA [Concomitant]
     Indication: EMPHYSEMA
  3. ADVAIR DISKUS 100/50 [Concomitant]
     Indication: EMPHYSEMA
  4. ALBUTEROL [Concomitant]
     Indication: EMPHYSEMA
  5. NEURONTIN [Concomitant]
  6. OXYCODONE HCL [Concomitant]
  7. XANAX [Concomitant]
     Indication: ANXIETY

REACTIONS (12)
  - ABDOMINAL DISCOMFORT [None]
  - ABDOMINAL DISTENSION [None]
  - ABDOMINAL PAIN UPPER [None]
  - ABNORMAL DREAMS [None]
  - CONSTIPATION [None]
  - DIARRHOEA [None]
  - FAECAL VOLUME INCREASED [None]
  - FLATULENCE [None]
  - FOOD CRAVING [None]
  - NAUSEA [None]
  - VOMITING [None]
  - WEIGHT INCREASED [None]
